FAERS Safety Report 14430802 (Version 2)
Quarter: 2018Q1

REPORT INFORMATION
  Report Type: Report from Study
  Country: None (occurrence: US)
  Receive Date: 20180124
  Receipt Date: 20180216
  Transmission Date: 20180509
  Serious: Yes (Other)
  Sender: FDA-Public Use
  Company Number: US-ABBVIE-18K-163-2230688-00

PATIENT
  Age: 30 Year
  Sex: Female

DRUGS (3)
  1. HUMIRA [Suspect]
     Active Substance: ADALIMUMAB
     Route: 058
     Dates: start: 20180105, end: 20180105
  2. HUMIRA [Suspect]
     Active Substance: ADALIMUMAB
     Indication: CROHN^S DISEASE
     Route: 058
     Dates: start: 2012, end: 201503
  3. HUMIRA [Suspect]
     Active Substance: ADALIMUMAB
     Route: 058
     Dates: start: 20180119

REACTIONS (6)
  - Crohn^s disease [Not Recovered/Not Resolved]
  - Crohn^s disease [Unknown]
  - Anal fissure [Unknown]
  - Post procedural complication [Not Recovered/Not Resolved]
  - Wrong technique in product usage process [Unknown]
  - Duodenal sphincterotomy [Not Recovered/Not Resolved]

NARRATIVE: CASE EVENT DATE: 2017
